FAERS Safety Report 4719648-X (Version None)
Quarter: 2005Q3

REPORT INFORMATION
  Report Type: 
  Country: None (occurrence: None)
  Receive Date: 20050721
  Receipt Date: 20040601
  Transmission Date: 20060218
  Serious: No
  Sender: FDA-Public Use
  Company Number: US-GLAXOSMITHKLINE-A0512873A

PATIENT
  Age: 41 Year
  Sex: Female

DRUGS (9)
  1. AVANDIA [Suspect]
     Dosage: 8MG PER DAY
     Route: 048
     Dates: start: 20031218, end: 20041001
  2. METFORMIN [Concomitant]
  3. GLUCOTROL XL [Concomitant]
  4. ADDERALL 30 [Concomitant]
  5. PROZAC [Concomitant]
  6. REMERON [Concomitant]
  7. ZYPREXA [Concomitant]
  8. PRILOSEC [Concomitant]
  9. MULTI-VITAMIN [Concomitant]

REACTIONS (1)
  - JOINT SWELLING [None]
